FAERS Safety Report 5927368-9 (Version None)
Quarter: 2008Q4

REPORT INFORMATION
  Report Type: 
  Country: None (occurrence: None)
  Receive Date: 20081020
  Receipt Date: 20071211
  Transmission Date: 20090506
  Serious: Yes (Life-Threatening, Hospitalization)
  Sender: FDA-Public Use
  Company Number: WAES0710USA00636

PATIENT
  Age: 62 Year
  Sex: Female
  Weight: 71.2147 kg

DRUGS (6)
  1. ZOLINZA [Suspect]
     Indication: BREAST CANCER METASTATIC
     Dosage: 400 MG DAILY PO
     Route: 048
     Dates: start: 20061214, end: 20070522
  2. TAMOXIFEN CITRATE [Suspect]
     Indication: BREAST CANCER
     Dosage: 20 MG DAILY PO
     Route: 048
     Dates: start: 20061214, end: 20071001
  3. ACIPHEX [Concomitant]
  4. COMPAZINE [Concomitant]
  5. TAXUS (TAMOXIFEN CITRATE) [Concomitant]
  6. OXYCODONE HCL [Concomitant]

REACTIONS (11)
  - ABDOMINAL PAIN LOWER [None]
  - BACK PAIN [None]
  - DEEP VEIN THROMBOSIS [None]
  - DIZZINESS [None]
  - HAEMOLYSIS [None]
  - HEPATIC FUNCTION ABNORMAL [None]
  - HYPOVOLAEMIC SHOCK [None]
  - INTRA-ABDOMINAL HAEMORRHAGE [None]
  - LYMPHADENOPATHY [None]
  - PULMONARY EMBOLISM [None]
  - SYNCOPE [None]
